FAERS Safety Report 9485898 (Version 1)
Quarter: 2013Q3

REPORT INFORMATION
  Report Type: Spontaneous
  Country: SE (occurrence: SE)
  Receive Date: 20130829
  Receipt Date: 20130829
  Transmission Date: 20140515
  Serious: Yes (Life-Threatening, Hospitalization, Disabling)
  Sender: FDA-Public Use
  Company Number: SE-ROCHE-1266711

PATIENT
  Age: 57 Year
  Sex: Female

DRUGS (8)
  1. ROACTEMRA [Suspect]
     Indication: PRODUCT USED FOR UNKNOWN INDICATION
     Dosage: CONCENTRATE FOR SOLUTION FOR INFUSION 20 MG/ML
     Route: 042
     Dates: start: 20120112, end: 20120813
  2. OMEPRAZOL [Concomitant]
  3. ALVEDON [Concomitant]
     Route: 065
  4. NAPROSYN [Concomitant]
     Route: 065
  5. DOLCONTIN [Concomitant]
     Route: 065
  6. PREDNISOLON [Concomitant]
  7. KALCIPOS-D [Concomitant]
     Dosage: 500 MG/400 MG IE
     Route: 065
  8. VALTREX [Concomitant]
     Route: 065

REACTIONS (3)
  - Diarrhoea [Recovered/Resolved with Sequelae]
  - Large intestine perforation [Recovered/Resolved with Sequelae]
  - Abdominal abscess [Recovered/Resolved with Sequelae]
